FAERS Safety Report 8159502-7 (Version None)
Quarter: 2012Q1

REPORT INFORMATION
  Report Type: 
  Country: None (occurrence: None)
  Receive Date: 20120223
  Receipt Date: 20120221
  Transmission Date: 20120608
  Serious: Yes (Hospitalization, Other)
  Sender: FDA-Public Use
  Company Number: US-TEVA-323506USA

PATIENT
  Sex: Female

DRUGS (3)
  1. ALENDRONIC ACID [Suspect]
  2. ALENDRONATE SODIUM [Suspect]
  3. FOSAMAX PLUS D [Suspect]

REACTIONS (5)
  - FEMUR FRACTURE [None]
  - PAIN [None]
  - FALL [None]
  - WRIST FRACTURE [None]
  - RIB FRACTURE [None]
